FAERS Safety Report 23918646 (Version 1)
Quarter: 2024Q2

REPORT INFORMATION
  Report Type: Spontaneous
  Country: ZA (occurrence: None)
  Receive Date: 20240530
  Receipt Date: 20240530
  Transmission Date: 20240715
  Serious: Yes (Hospitalization)
  Sender: FDA-Public Use
  Company Number: 2024A121410

PATIENT
  Age: 82 Year
  Sex: Female

DRUGS (7)
  1. BUDESONIDE\FORMOTEROL FUMARATE DIHYDRATE [Suspect]
     Active Substance: BUDESONIDE\FORMOTEROL FUMARATE DIHYDRATE
     Indication: Asthma
     Dosage: 120 DOSE, 160/4.5 MCG, UNKNOWN UNKNOWN
     Route: 055
  2. MYLAN INDAPAMIDE [Concomitant]
     Indication: Hypertension
  3. TIOTROPIUM BROMIDE [Concomitant]
     Active Substance: TIOTROPIUM BROMIDE
  4. BISOPROLOL [Concomitant]
     Active Substance: BISOPROLOL\BISOPROLOL FUMARATE
     Indication: Hypertension
  5. ECOTRIN [Concomitant]
     Active Substance: ASPIRIN
  6. ROSUVASTATIN [Concomitant]
     Active Substance: ROSUVASTATIN
     Indication: Blood cholesterol
  7. MEMANTINE UNICHEM [Concomitant]
     Indication: Dementia Alzheimer^s type

REACTIONS (1)
  - Fall [Unknown]
